FAERS Safety Report 7295207-2 (Version None)
Quarter: 2011Q1

REPORT INFORMATION
  Report Type: 
  Country: None (occurrence: None)
  Receive Date: 20110216
  Receipt Date: 20101202
  Transmission Date: 20110831
  Serious: No
  Sender: FDA-Public Use
  Company Number: A0898710A

PATIENT
  Sex: Female

DRUGS (1)
  1. VOTRIENT [Suspect]
     Dosage: 800MGD PER DAY
     Route: 048
     Dates: start: 20101021

REACTIONS (7)
  - PAIN OF SKIN [None]
  - PAIN [None]
  - LACRIMATION INCREASED [None]
  - VOMITING [None]
  - GINGIVAL PAIN [None]
  - NAUSEA [None]
  - ALOPECIA [None]
